FAERS Safety Report 21763709 (Version 1)
Quarter: 2022Q4

REPORT INFORMATION
  Report Type: Spontaneous
  Country: GB (occurrence: GB)
  Receive Date: 20221222
  Receipt Date: 20221222
  Transmission Date: 20230112
  Serious: Yes (Hospitalization)
  Sender: FDA-Public Use
  Company Number: GB-TEVA-2022-GB-2838268

PATIENT
  Age: 59 Year
  Sex: Male

DRUGS (11)
  1. DEXAMETHASONE [Suspect]
     Active Substance: DEXAMETHASONE
     Indication: Granulomatosis with polyangiitis
     Route: 048
  2. PREDNISONE [Suspect]
     Active Substance: PREDNISONE
     Indication: Granulomatosis with polyangiitis
     Route: 065
  3. METHYLPREDNISOLONE [Suspect]
     Active Substance: METHYLPREDNISOLONE
     Indication: Granulomatosis with polyangiitis
     Route: 042
  4. TOCILIZUMAB [Suspect]
     Active Substance: TOCILIZUMAB
     Indication: Granulomatosis with polyangiitis
     Route: 058
  5. RITUXIMAB [Concomitant]
     Active Substance: RITUXIMAB
     Indication: Granulomatosis with polyangiitis
     Dosage: ROUTE: INFUSION
     Route: 050
  6. APIXABAN [Concomitant]
     Active Substance: APIXABAN
     Indication: Pulmonary embolism
     Route: 065
  7. BACLOFEN [Concomitant]
     Active Substance: BACLOFEN
     Indication: Product used for unknown indication
     Route: 065
  8. FUROSEMIDE [Concomitant]
     Active Substance: FUROSEMIDE
     Indication: Hypertension
     Route: 065
  9. GABAPENTIN [Concomitant]
     Active Substance: GABAPENTIN
     Indication: Product used for unknown indication
     Route: 065
  10. LISINOPRIL [Concomitant]
     Active Substance: LISINOPRIL
     Indication: Hypertension
     Route: 065
  11. METOPROLOL [Concomitant]
     Active Substance: METOPROLOL
     Indication: Hypertension
     Route: 065

REACTIONS (7)
  - Cushingoid [Unknown]
  - Alopecia [Unknown]
  - Acne [Unknown]
  - Skin striae [Unknown]
  - Myopathy [Unknown]
  - Osteonecrosis [Unknown]
  - Therapy non-responder [Unknown]
